FAERS Safety Report 26110741 (Version 1)
Quarter: 2025Q4

REPORT INFORMATION
  Report Type: Spontaneous
  Country: US (occurrence: US)
  Receive Date: 20251202
  Receipt Date: 20251202
  Transmission Date: 20260117
  Serious: Yes (Hospitalization)
  Sender: DR REDDYS
  Company Number: US-DRL-USA-USA/2025/11/018015

PATIENT
  Age: 46 Year
  Sex: Male

DRUGS (1)
  1. NALOXONE [Suspect]
     Active Substance: NALOXONE
     Indication: Toxicity to various agents
     Route: 065

REACTIONS (1)
  - Agitation [Unknown]
